FAERS Safety Report 12978610 (Version 4)
Quarter: 2017Q1

REPORT INFORMATION
  Report Type: Report from Study
  Country: BG (occurrence: BG)
  Receive Date: 20161128
  Receipt Date: 20170308
  Transmission Date: 20170428
  Serious: Yes (Hospitalization)
  Sender: FDA-Public Use
  Company Number: BG-NOVOPROD-519257

PATIENT
  Age: 46 Year
  Sex: Female
  Weight: 61.4 kg

DRUGS (6)
  1. FIASP 3ML PDS290 [Suspect]
     Active Substance: INSULIN ASPART
     Indication: TYPE 1 DIABETES MELLITUS
     Dosage: 13 U, QD
     Route: 058
     Dates: start: 20160722
  2. NOVORAPID [Concomitant]
     Active Substance: INSULIN ASPART
     Dosage: 13 U, QD
     Route: 065
     Dates: start: 20170118
  3. TRESIBA [Concomitant]
     Active Substance: INSULIN DEGLUDEC
     Dosage: 12 U, QD
     Route: 065
     Dates: start: 201512, end: 20160524
  4. TRESIBA [Concomitant]
     Active Substance: INSULIN DEGLUDEC
     Dosage: 11 U, QD
     Route: 065
     Dates: start: 20170118
  5. NOVORAPID [Concomitant]
     Active Substance: INSULIN ASPART
     Dosage: 20 U, QD
     Route: 065
     Dates: start: 2009, end: 20160524
  6. IDEG PDS290 [Suspect]
     Active Substance: INSULIN DEGLUDEC
     Indication: TYPE 1 DIABETES MELLITUS
     Dosage: 12 U, QD
     Route: 058
     Dates: start: 20160525

REACTIONS (1)
  - Diabetic metabolic decompensation [Recovered/Resolved]

NARRATIVE: CASE EVENT DATE: 20161114
